FAERS Safety Report 13034042 (Version 1)
Quarter: 2016Q4

REPORT INFORMATION
  Report Type: Report from Study
  Country: US (occurrence: US)
  Receive Date: 20161216
  Receipt Date: 20161216
  Transmission Date: 20170207
  Serious: Yes (Hospitalization, Other)
  Sender: FDA-Public Use
  Company Number: US-BAYER-2016-051944

PATIENT
  Age: 72 Year
  Sex: Female

DRUGS (11)
  1. ADEMPAS [Suspect]
     Active Substance: RIOCIGUAT
     Indication: PULMONARY ARTERIAL HYPERTENSION
     Dosage: 2 MG, TID
     Route: 048
  2. ADEMPAS [Suspect]
     Active Substance: RIOCIGUAT
     Indication: PULMONARY ARTERIAL HYPERTENSION
     Dosage: 2.5 MG, TID
     Route: 048
     Dates: start: 20151211
  3. UPTRAVI [Suspect]
     Active Substance: SELEXIPAG
     Dosage: 200 MG, TID
  4. ADEMPAS [Suspect]
     Active Substance: RIOCIGUAT
     Indication: PULMONARY ARTERIAL HYPERTENSION
     Dosage: UNK
     Route: 048
     Dates: start: 20151210
  5. ADEMPAS [Suspect]
     Active Substance: RIOCIGUAT
     Indication: PULMONARY ARTERIAL HYPERTENSION
     Dosage: 2.5 MG, TID
     Route: 048
     Dates: start: 20160420, end: 2016
  6. LETAIRIS [Suspect]
     Active Substance: AMBRISENTAN
     Indication: PULMONARY HYPERTENSION
     Dosage: 10 MG, QD
     Route: 048
     Dates: start: 20150923
  7. TIKOSYN [Suspect]
     Active Substance: DOFETILIDE
     Dosage: UNK
  8. METOLAZONE. [Concomitant]
     Active Substance: METOLAZONE
     Dosage: UNK
     Dates: end: 201605
  9. ADEMPAS [Suspect]
     Active Substance: RIOCIGUAT
     Indication: PULMONARY ARTERIAL HYPERTENSION
     Dosage: 2.5 MG, TID
     Route: 048
     Dates: start: 2016
  10. UPTRAVI [Suspect]
     Active Substance: SELEXIPAG
     Dosage: 400 MG, BID
     Dates: start: 20160525
  11. RYTHMOL [Concomitant]
     Active Substance: PROPAFENONE HYDROCHLORIDE
     Dosage: DOSE INCREASED (UNSPECIFIED)
     Dates: start: 201605, end: 201607

REACTIONS (17)
  - Dyspnoea [None]
  - Small intestinal obstruction [None]
  - Atrial fibrillation [Unknown]
  - Drug dose omission [None]
  - Dyspnoea [None]
  - Cardioversion [None]
  - Atrial fibrillation [Recovered/Resolved]
  - Dyspnoea exertional [None]
  - Chest pain [None]
  - Chest pain [None]
  - Diarrhoea [None]
  - Dyspnoea at rest [None]
  - Urinary tract infection [None]
  - Anaemia [None]
  - Musculoskeletal pain [None]
  - Haemorrhoidal haemorrhage [None]
  - Dyspnoea [None]

NARRATIVE: CASE EVENT DATE: 20160523
